FAERS Safety Report 20200823 (Version 1)
Quarter: 2021Q4

REPORT INFORMATION
  Report Type: Report from Study
  Country: US (occurrence: US)
  Receive Date: 20211217
  Receipt Date: 20211217
  Transmission Date: 20220303
  Serious: Yes (Hospitalization)
  Sender: FDA-Public Use
  Company Number: US-JNJFOC-20211020001

PATIENT
  Age: 75 Year
  Sex: Female
  Weight: 107.04 kg

DRUGS (17)
  1. MACITENTAN [Suspect]
     Active Substance: MACITENTAN
     Indication: Pulmonary arterial hypertension
     Route: 048
     Dates: start: 202108, end: 20211006
  2. MACITENTAN [Suspect]
     Active Substance: MACITENTAN
     Route: 048
     Dates: start: 20210901, end: 20210920
  3. ADEMPAS [Suspect]
     Active Substance: RIOCIGUAT
     Indication: Pulmonary arterial hypertension
     Route: 048
     Dates: start: 20210813, end: 20210828
  4. ALLOPURINOL [Concomitant]
     Active Substance: ALLOPURINOL
     Dosage: ONE TABLET ORAL ONCE DAILY
     Route: 048
  5. AMLODIPINE [Concomitant]
     Active Substance: AMLODIPINE BESYLATE
     Dosage: 1 TABLET ORAL ONCE DAILY
     Route: 048
  6. BETAMETHASONE DIPROPIONATE [Concomitant]
     Active Substance: BETAMETHASONE DIPROPIONATE
     Dosage: APPLY FEW DROPS TO AFFECTED AREA BY TOPIICAL ROUTE 2 TIMES PER DAY IN THE MORNING AND BED TIME , RUB
     Route: 061
  7. CARVEDILOL [Concomitant]
     Active Substance: CARVEDILOL
     Dosage: 1 TABLET BY ORL ROUTE 2 TIMES PER DAY WITH FOOD
  8. CHOLECALCIFEROL [Concomitant]
     Active Substance: CHOLECALCIFEROL
  9. DIAZEPAM [Concomitant]
     Active Substance: DIAZEPAM
     Dosage: ONE TABLET THREE TIMES PER DAY AS NEEDED.
  10. LEVOTHYROXINE [Concomitant]
     Active Substance: LEVOTHYROXINE
     Route: 048
  11. LIDODERM [Concomitant]
     Active Substance: LIDOCAINE
     Dosage: APPLY 3 PATCHES TRANSDERMAL ROUTE ONCE DAILY
     Route: 062
  12. LOSARTAN [Concomitant]
     Active Substance: LOSARTAN
     Route: 048
  13. NOVOLOG [Concomitant]
     Active Substance: INSULIN ASPART
     Dosage: AS PER INSULIN PROTOCOL
     Route: 058
  14. KCL [Concomitant]
     Active Substance: POTASSIUM CHLORIDE
     Route: 048
     Dates: start: 20210315
  15. PRAVASTATIN SODIUM [Concomitant]
     Active Substance: PRAVASTATIN SODIUM
     Route: 048
  16. TORSEMIDE [Concomitant]
     Active Substance: TORSEMIDE
     Route: 048
  17. WARFARIN [Concomitant]
     Active Substance: WARFARIN
     Dosage: HALF TABLET ON SATURDAY AND 1 TABLET ON ALL OTHER DAYS
     Dates: start: 20210129

REACTIONS (8)
  - Fluid retention [Not Recovered/Not Resolved]
  - Cardiac failure congestive [Recovered/Resolved with Sequelae]
  - Cardiorenal syndrome [Recovered/Resolved with Sequelae]
  - Fall [Unknown]
  - Injury [Unknown]
  - Hypoglycaemia [Unknown]
  - Dyspnoea [Unknown]
  - Oedema [Unknown]

NARRATIVE: CASE EVENT DATE: 20210924
